FAERS Safety Report 8093292-1 (Version None)
Quarter: 2012Q1

REPORT INFORMATION
  Report Type: 
  Country: None (occurrence: None)
  Receive Date: 20120128
  Receipt Date: 20110920
  Transmission Date: 20120608
  Serious: No
  Sender: FDA-Public Use
  Company Number: US-ABBOTT-11P-163-0734488-00

PATIENT
  Sex: Female

DRUGS (10)
  1. BENICAR [Concomitant]
     Indication: HYPERTENSION
     Route: 048
  2. PENTASA [Concomitant]
     Indication: PRODUCT USED FOR UNKNOWN INDICATION
  3. HUMIRA [Suspect]
     Indication: CROHN'S DISEASE
     Route: 058
     Dates: start: 20110606, end: 20110606
  4. HUMIRA [Suspect]
     Dates: start: 20110608
  5. ATENOLOL [Concomitant]
     Indication: HYPERTENSION
     Route: 048
  6. OMEPRAZOLE [Concomitant]
     Indication: GASTROOESOPHAGEAL REFLUX DISEASE
     Route: 050
  7. PREDNISONE [Suspect]
     Indication: CROHN'S DISEASE
     Dates: start: 20110501
  8. FOLIC ACID [Concomitant]
     Indication: VITAMIN SUPPLEMENTATION
     Route: 048
  9. EVISTA [Concomitant]
     Indication: OSTEOPOROSIS
     Route: 048
  10. SIMVASTATIN [Concomitant]
     Indication: BLOOD CHOLESTEROL INCREASED
     Route: 050

REACTIONS (6)
  - OEDEMA PERIPHERAL [None]
  - HYPOAESTHESIA [None]
  - INJECTION SITE REACTION [None]
  - INJECTION SITE ERYTHEMA [None]
  - COUGH [None]
  - JOINT SWELLING [None]
